FAERS Safety Report 20380057 (Version 2)
Quarter: 2022Q3

REPORT INFORMATION
  Report Type: Report from Study
  Country: SE (occurrence: SE)
  Receive Date: 20220126
  Receipt Date: 20220906
  Transmission Date: 20221027
  Serious: Yes (Hospitalization)
  Sender: FDA-Public Use
  Company Number: SE-JNJFOC-20220130681

PATIENT
  Age: 59 Year
  Sex: Male
  Weight: 93 kg

DRUGS (18)
  1. IBRUTINIB [Suspect]
     Active Substance: IBRUTINIB
     Indication: Mantle cell lymphoma
     Route: 048
     Dates: start: 20200908, end: 20220114
  2. RITUXIMAB [Concomitant]
     Active Substance: RITUXIMAB
     Indication: Mantle cell lymphoma
     Route: 065
     Dates: start: 20200908, end: 20210104
  3. RITUXIMAB [Concomitant]
     Active Substance: RITUXIMAB
     Route: 065
     Dates: start: 20210319
  4. RITUXIMAB [Concomitant]
     Active Substance: RITUXIMAB
     Route: 065
     Dates: start: 20210517
  5. RITUXIMAB [Concomitant]
     Active Substance: RITUXIMAB
     Route: 065
     Dates: start: 20210709
  6. RITUXIMAB [Concomitant]
     Active Substance: RITUXIMAB
     Route: 065
     Dates: start: 20210903
  7. RITUXIMAB [Concomitant]
     Active Substance: RITUXIMAB
     Route: 065
     Dates: start: 20211102
  8. RITUXIMAB [Concomitant]
     Active Substance: RITUXIMAB
     Route: 065
     Dates: start: 20211223
  9. CYCLOPHOSPHAMIDE [Concomitant]
     Active Substance: CYCLOPHOSPHAMIDE
     Indication: Mantle cell lymphoma
     Route: 065
     Dates: start: 20200908, end: 20210104
  10. DOXORUBICIN [Concomitant]
     Active Substance: DOXORUBICIN
     Indication: Mantle cell lymphoma
     Route: 065
     Dates: start: 20200908, end: 20210104
  11. PREDNISONE [Concomitant]
     Active Substance: PREDNISONE
     Indication: Mantle cell lymphoma
     Route: 065
     Dates: start: 20200908, end: 20210104
  12. DEXAMETHASONE [Concomitant]
     Active Substance: DEXAMETHASONE
     Indication: Mantle cell lymphoma
     Route: 065
     Dates: start: 20200908, end: 20210104
  13. CYTARABINE [Concomitant]
     Active Substance: CYTARABINE
     Indication: Mantle cell lymphoma
     Route: 065
     Dates: start: 20200908, end: 20210104
  14. VINCRISTINE [Concomitant]
     Active Substance: VINCRISTINE
     Indication: Mantle cell lymphoma
     Route: 065
     Dates: start: 20200908, end: 20210104
  15. OXALIPLATIN [Concomitant]
     Active Substance: OXALIPLATIN
     Indication: Mantle cell lymphoma
     Route: 065
     Dates: start: 20200908, end: 20210104
  16. ALFUZOSIN [Concomitant]
     Active Substance: ALFUZOSIN
     Indication: Benign prostatic hyperplasia
     Dates: start: 2015
  17. CANDESARTAN CILEXETIL [Concomitant]
     Active Substance: CANDESARTAN CILEXETIL
     Indication: Hypertension
     Dates: start: 2020
  18. GRANULOCYTE COLONY-STIMULATING FACTOR NOS [Concomitant]
     Active Substance: GRANULOCYTE COLONY-STIMULATING FACTOR NOS
     Indication: Product used for unknown indication
     Dates: start: 20210210

REACTIONS (1)
  - Febrile neutropenia [Recovered/Resolved]

NARRATIVE: CASE EVENT DATE: 20220114
